FAERS Safety Report 5871469-0 (Version None)
Quarter: 2008Q3

REPORT INFORMATION
  Report Type: 
  Country: None (occurrence: None)
  Receive Date: 20080905
  Receipt Date: 20080312
  Transmission Date: 20090109
  Serious: No
  Sender: FDA-Public Use
  Company Number: A0707823A

PATIENT
  Age: 85 Year
  Sex: Female

DRUGS (6)
  1. REQUIP [Suspect]
     Indication: RESTLESS LEGS SYNDROME
     Dosage: 2MG TWICE PER DAY
     Route: 048
     Dates: start: 20060201, end: 20060701
  2. COZAAR [Concomitant]
  3. AGGRENOX [Concomitant]
  4. SPIRONOLACTONE [Concomitant]
  5. TETRACYCLINE [Concomitant]
  6. ZOLOFT [Concomitant]

REACTIONS (1)
  - FLUID RETENTION [None]
